FAERS Safety Report 6372061-4 (Version None)
Quarter: 2009Q3

REPORT INFORMATION
  Report Type: 
  Country: None (occurrence: None)
  Receive Date: 20090917
  Receipt Date: 20090904
  Transmission Date: 20100115
  Serious: Yes (Other)
  Sender: FDA-Public Use
  Company Number: ADR23432009

PATIENT
  Age: 40 Year
  Sex: Male

DRUGS (1)
  1. CITALOPRAM HYDROBROMIDE [Suspect]
     Dosage: 30 MG - 1/1 DAY;

REACTIONS (2)
  - RETINAL HAEMORRHAGE [None]
  - RETINAL VEIN OCCLUSION [None]
